FAERS Safety Report 19755278 (Version 1)
Quarter: 2021Q3

REPORT INFORMATION
  Report Type: Other
  Country: US (occurrence: US)
  Receive Date: 20210827
  Receipt Date: 20210827
  Transmission Date: 20211014
  Serious: Yes (Other)
  Sender: FDA-Public Use
  Company Number: US-ROCHE-2894735

PATIENT
  Age: 61 Year
  Sex: Female

DRUGS (16)
  1. LIDODERM [Concomitant]
     Active Substance: LIDOCAINE
  2. OCREVUS [Suspect]
     Active Substance: OCRELIZUMAB
     Indication: RELAPSING MULTIPLE SCLEROSIS
  3. AMLODIPINE [Concomitant]
     Active Substance: AMLODIPINE BESYLATE
  4. FLONASE [Concomitant]
     Active Substance: FLUTICASONE PROPIONATE
  5. OCREVUS [Suspect]
     Active Substance: OCRELIZUMAB
     Indication: MULTIPLE SCLEROSIS
     Dosage: (PRESCRIBED AS 300 MG ON DAY 1 AND DAY 15 AND 600 MG ONCE IN 6 MONTHS)
     Route: 042
  6. ATORVASTATIN [Concomitant]
     Active Substance: ATORVASTATIN
  7. BACLOFEN. [Concomitant]
     Active Substance: BACLOFEN
  8. PROVIGIL [Concomitant]
     Active Substance: MODAFINIL
  9. DOXEPIN [Concomitant]
     Active Substance: DOXEPIN
  10. AZELASTINE. [Concomitant]
     Active Substance: AZELASTINE HYDROCHLORIDE
  11. CIPROFLOXACIN. [Concomitant]
     Active Substance: CIPROFLOXACIN
  12. LUNESTA [Concomitant]
     Active Substance: ESZOPICLONE
  13. KEFLEX [Concomitant]
     Active Substance: CEPHALEXIN
  14. LORAZEPAM. [Concomitant]
     Active Substance: LORAZEPAM
  15. TYLENOL [Concomitant]
     Active Substance: ACETAMINOPHEN
  16. CYMBALTA [Concomitant]
     Active Substance: DULOXETINE HYDROCHLORIDE

REACTIONS (7)
  - Multiple sclerosis [Unknown]
  - Demyelination [Unknown]
  - Anxiety [Unknown]
  - Urinary tract infection [Unknown]
  - Neutropenia [Unknown]
  - White blood cell count decreased [Unknown]
  - Cerebral atrophy [Unknown]

NARRATIVE: CASE EVENT DATE: 202005
